FAERS Safety Report 8429138-9 (Version None)
Quarter: 2012Q2

REPORT INFORMATION
  Report Type: 
  Country: None (occurrence: None)
  Receive Date: 20120612
  Receipt Date: 20120606
  Transmission Date: 20120825
  Serious: Yes (Hospitalization)
  Sender: FDA-Public Use
  Company Number: AR-SANOFI-AVENTIS-2012SA035009

PATIENT
  Age: 64 Year
  Sex: Female
  Weight: 75.8 kg

DRUGS (8)
  1. INSULIN GLARGINE [Suspect]
     Indication: TYPE 2 DIABETES MELLITUS
     Route: 065
     Dates: start: 20110124
  2. NEBIVOLOL [Concomitant]
     Indication: HYPERTENSION
     Dates: start: 20090101
  3. GLYBURIDE [Concomitant]
     Dates: start: 19960101
  4. CILOSTAZOL [Concomitant]
     Dates: start: 20090101
  5. ATORVASTATIN CALCIUM [Concomitant]
     Dates: start: 19950101
  6. ATORVASTATIN CALCIUM [Concomitant]
     Dates: start: 19950101
  7. METFORMIN HCL [Suspect]
     Indication: TYPE 2 DIABETES MELLITUS
     Route: 065
     Dates: start: 20100515
  8. LEVOTHYROXINE SODIUM [Concomitant]
     Indication: HYPOTHYROIDISM
     Dates: start: 20060101

REACTIONS (2)
  - CAROTID ARTERY OCCLUSION [None]
  - CORONARY ARTERY OCCLUSION [None]
